FAERS Safety Report 10534225 (Version 4)
Quarter: 2015Q1

REPORT INFORMATION
  Report Type: Spontaneous
  Country: JP (occurrence: JP)
  Receive Date: 20141022
  Receipt Date: 20150123
  Transmission Date: 20150720
  Serious: Yes (Other)
  Sender: FDA-Public Use
  Company Number: PHHY2014JP136286

PATIENT
  Age: 68 Year
  Sex: Female

DRUGS (6)
  1. WARFARIN [Interacting]
     Active Substance: WARFARIN
     Dosage: 1.5 MG, UNK
     Route: 048
  2. DICLOFENAC [Interacting]
     Active Substance: DICLOFENAC
     Dosage: UNK
     Route: 054
     Dates: start: 20131118, end: 20131226
  3. WARFARIN [Interacting]
     Active Substance: WARFARIN
     Indication: CEREBRAL INFARCTION
     Dosage: 3 MG, UNK
     Route: 048
  4. DICLOFENAC [Suspect]
     Active Substance: DICLOFENAC
     Indication: PAIN
     Dosage: 25 MG, PRN
     Route: 065
  5. DICLOFENAC [Interacting]
     Active Substance: DICLOFENAC
     Dosage: UNK
     Route: 054
     Dates: start: 20131227, end: 20140115
  6. LOXOPROFEN [Interacting]
     Active Substance: LOXOPROFEN
     Indication: PAIN
     Route: 048
     Dates: start: 20131118

REACTIONS (3)
  - International normalised ratio increased [Recovering/Resolving]
  - Haemorrhage [Recovering/Resolving]
  - Drug interaction [Unknown]

NARRATIVE: CASE EVENT DATE: 20140115
